FAERS Safety Report 11438116 (Version 1)
Quarter: 2015Q3

REPORT INFORMATION
  Report Type: Spontaneous
  Country: GB (occurrence: GB)
  Receive Date: 20150901
  Receipt Date: 20150901
  Transmission Date: 20151125
  Serious: Yes (Hospitalization, Other)
  Sender: FDA-Public Use
  Company Number: PHHY2015GB101432

PATIENT
  Sex: Female

DRUGS (4)
  1. NEULASTA [Suspect]
     Active Substance: PEGFILGRASTIM
     Indication: PRODUCT USED FOR UNKNOWN INDICATION
     Route: 065
     Dates: start: 20150730
  2. DOCETAXEL. [Suspect]
     Active Substance: DOCETAXEL
     Indication: PRODUCT USED FOR UNKNOWN INDICATION
     Route: 065
  3. PERTUZUMAB [Suspect]
     Active Substance: PERTUZUMAB
     Indication: PRODUCT USED FOR UNKNOWN INDICATION
     Route: 065
  4. HERCEPTIN [Suspect]
     Active Substance: TRASTUZUMAB
     Indication: PRODUCT USED FOR UNKNOWN INDICATION
     Route: 058

REACTIONS (18)
  - Decreased appetite [Unknown]
  - Lower respiratory tract infection [Unknown]
  - Pollakiuria [Recovered/Resolved]
  - Fatigue [Unknown]
  - Urinary tract infection [Unknown]
  - Musculoskeletal discomfort [Unknown]
  - Micturition urgency [Not Recovered/Not Resolved]
  - Irritable bowel syndrome [Unknown]
  - Vaginal prolapse [Unknown]
  - Chest discomfort [Unknown]
  - Nausea [Recovered/Resolved]
  - Lethargy [Unknown]
  - Hypoaesthesia [Unknown]
  - Gingival pain [Unknown]
  - Insomnia [Unknown]
  - Oral pain [Unknown]
  - Constipation [Not Recovered/Not Resolved]
  - Alopecia [Unknown]

NARRATIVE: CASE EVENT DATE: 20150730
